FAERS Safety Report 7228845-3 (Version None)
Quarter: 2011Q1

REPORT INFORMATION
  Report Type: 
  Country: None (occurrence: None)
  Receive Date: 20110117
  Receipt Date: 20101122
  Transmission Date: 20110831
  Serious: Yes (Hospitalization, Other)
  Sender: FDA-Public Use
  Company Number: US-BAYER-201014008NA

PATIENT
  Sex: Female
  Weight: 61.678 kg

DRUGS (11)
  1. IBUPROFEN [Concomitant]
  2. LAMICTAL [Concomitant]
  3. MEDROXYPROGESTERONE [Concomitant]
  4. YAZ [Suspect]
     Indication: PREMENSTRUAL SYNDROME
     Dosage: UNK
     Route: 048
     Dates: start: 20050101, end: 20090801
  5. ZOLOFT [Concomitant]
  6. LORAZEPAM [Concomitant]
  7. CYMBALTA [Concomitant]
  8. NAPROSYN [Concomitant]
  9. YAZ [Suspect]
     Indication: CONTRACEPTION
     Route: 048
     Dates: start: 20080901, end: 20090901
  10. CLONAZEPAM [Concomitant]
  11. UNCODEABLE ^UNCLASSIFIABLE^ [Concomitant]

REACTIONS (6)
  - ABDOMINAL PAIN [None]
  - DIARRHOEA [None]
  - VOMITING [None]
  - PANCREATITIS [None]
  - CHOLECYSTITIS CHRONIC [None]
  - PREMENSTRUAL SYNDROME [None]
